FAERS Safety Report 12927694 (Version 1)
Quarter: 2016Q4

REPORT INFORMATION
  Report Type: Spontaneous
  Country: US (occurrence: US)
  Receive Date: 20161109
  Receipt Date: 20161109
  Transmission Date: 20170207
  Serious: No
  Sender: FDA-Public Use
  Company Number: None

PATIENT
  Age: 56 Year
  Weight: 83.25 kg

DRUGS (2)
  1. HCTZ [Concomitant]
     Active Substance: HYDROCHLOROTHIAZIDE
  2. ESTRADIOL 0.05MG TRANSDERMAL SYS MYLAN [Suspect]
     Active Substance: ESTRADIOL
     Indication: HORMONE REPLACEMENT THERAPY
     Dosage: ?          QUANTITY:1 PATCH(ES);OTHER FREQUENCY:TWICE WEEKLY;?
     Route: 062
     Dates: start: 20161001, end: 20161108

REACTIONS (5)
  - Application site pruritus [None]
  - Application site exfoliation [None]
  - Application site inflammation [None]
  - Application site erythema [None]
  - Application site discolouration [None]

NARRATIVE: CASE EVENT DATE: 20161108
